FAERS Safety Report 5476117-X (Version None)
Quarter: 2007Q4

REPORT INFORMATION
  Report Type: 
  Country: None (occurrence: None)
  Receive Date: 20071003
  Receipt Date: 20070924
  Transmission Date: 20080405
  Serious: Yes (Death, Life-Threatening, Hospitalization, Other)
  Sender: FDA-Public Use
  Company Number: US-ELI_LILLY_AND_COMPANY-US200707005362

PATIENT
  Age: 43 Year
  Sex: Male

DRUGS (5)
  1. LISINOPRIL [Concomitant]
  2. PREGABALIN [Concomitant]
  3. METFORMIN HCL [Concomitant]
  4. CYMBALTA [Suspect]
     Indication: BACK PAIN
     Dosage: 60 MG, DAILY (1/D)
     Dates: end: 20070703
  5. OXYCODONE HCL [Concomitant]

REACTIONS (3)
  - DEATH [None]
  - ENCEPHALOPATHY [None]
  - SEROTONIN SYNDROME [None]
